FAERS Safety Report 6162458-X (Version None)
Quarter: 2009Q2

REPORT INFORMATION
  Report Type: 
  Country: None (occurrence: None)
  Receive Date: 20090421
  Receipt Date: 20090413
  Transmission Date: 20091009
  Serious: Yes (Other)
  Sender: FDA-Public Use
  Company Number: PHHY2009CA08729

PATIENT

DRUGS (1)
  1. CO-DIOVAN T32564+ [Suspect]
     Dosage: 80/12.5 MG DAILY

REACTIONS (1)
  - CARDIAC FAILURE CONGESTIVE [None]
